FAERS Safety Report 7841981-3 (Version None)
Quarter: 2011Q4

REPORT INFORMATION
  Report Type: 
  Country: None (occurrence: None)
  Receive Date: 20111019
  Receipt Date: 20111006
  Transmission Date: 20120403
  Serious: Yes (Other)
  Sender: FDA-Public Use
  Company Number: 2011SP047502

PATIENT
  Age: 40 Year
  Sex: Female
  Weight: 60 kg

DRUGS (6)
  1. NASONEX [Suspect]
     Indication: RHINITIS
     Dosage: QD;NAS
     Route: 045
     Dates: start: 20110830, end: 20110928
  2. ATORVASTATIN [Concomitant]
  3. LEVOTHYROXINE SODIUM [Concomitant]
  4. METFORMIN HYDROCHLORIDE [Concomitant]
  5. DESALEX (DESLORATADINE) [Suspect]
     Indication: RHINITIS
     Dosage: BID;PO
     Route: 048
     Dates: start: 20110830, end: 20110915
  6. BUPROPION HCL [Concomitant]

REACTIONS (1)
  - LOSS OF CONSCIOUSNESS [None]
